FAERS Safety Report 6882888-8 (Version None)
Quarter: 2010Q3

REPORT INFORMATION
  Report Type: 
  Country: None (occurrence: None)
  Receive Date: 20100729
  Receipt Date: 20100720
  Transmission Date: 20110219
  Serious: Yes (Hospitalization)
  Sender: FDA-Public Use
  Company Number: JP-PFIZER INC-2010077874

PATIENT
  Age: 67 Year
  Sex: Male
  Weight: 75.4 kg

DRUGS (7)
  1. SUNITINIB MALATE [Suspect]
     Indication: RENAL CELL CARCINOMA
     Dosage: 50 MG, 1X/DAY
     Route: 048
     Dates: start: 20090915, end: 20091005
  2. TAKEPRON [Concomitant]
     Indication: REFLUX OESOPHAGITIS
     Dosage: 15 MG, 1X/DAY
     Route: 048
  3. ALOSITOL [Concomitant]
     Dosage: 100 MG, 1X/DAY
     Route: 048
  4. URALYT [Concomitant]
     Dosage: 1 G, 1X/DAY
     Route: 048
  5. MELBIN [Concomitant]
     Dosage: 250 MG, 3X/DAY
     Route: 048
  6. LASIX [Concomitant]
     Dosage: 20 MG, 1X/DAY
     Route: 048
  7. KALIMATE [Concomitant]
     Dosage: 5.4 G, 3X/DAY
     Route: 048

REACTIONS (4)
  - MALAISE [None]
  - ONCOLOGIC COMPLICATION [None]
  - RENAL IMPAIRMENT [None]
  - THROMBOCYTOPENIA [None]
